FAERS Safety Report 19712633 (Version 1)
Quarter: 2021Q3

REPORT INFORMATION
  Report Type: Spontaneous
  Country: US (occurrence: US)
  Receive Date: 20210816
  Receipt Date: 20210816
  Transmission Date: 20211014
  Serious: Yes (Hospitalization)
  Sender: FDA-Public Use
  Company Number: None

PATIENT
  Sex: Male

DRUGS (20)
  1. CEPHALEXIN. [Concomitant]
     Active Substance: CEPHALEXIN
  2. CIT CALC/D [Concomitant]
  3. WARFARIN [Concomitant]
     Active Substance: WARFARIN
  4. PREDNISONE. [Concomitant]
     Active Substance: PREDNISONE
  5. TAMSULOSIN [Concomitant]
     Active Substance: TAMSULOSIN
  6. HYDROCO/APAP [Concomitant]
     Active Substance: ACETAMINOPHEN\HYDROCODONE
  7. URSODIOL. [Concomitant]
     Active Substance: URSODIOL
  8. FERROUS SULF EC [Concomitant]
  9. LEVOTHYROXIN [Concomitant]
     Active Substance: LEVOTHYROXINE
  10. SMZ/TMP DS [Concomitant]
     Active Substance: SULFAMETHOXAZOLE\TRIMETHOPRIM
  11. TACROLIMUS 1MG CAP [Suspect]
     Active Substance: TACROLIMUS
     Indication: LIVER TRANSPLANT
     Dosage: ?          OTHER FREQUENCY:QAM?QPM?
     Route: 048
     Dates: start: 20200414
  12. DAPSONE. [Concomitant]
     Active Substance: DAPSONE
  13. PRAVASTATIN. [Concomitant]
     Active Substance: PRAVASTATIN
  14. NITROFURANTIN [Concomitant]
     Active Substance: NITROFURANTOIN
  15. PANTOPRAZOLE [Concomitant]
     Active Substance: PANTOPRAZOLE
  16. VEMLIDY [Suspect]
     Active Substance: TENOFOVIR ALAFENAMIDE FUMARATE
     Indication: LIVER TRANSPLANT
     Route: 048
     Dates: start: 20210114
  17. MAG OXIDE [Concomitant]
     Active Substance: MAGNESIUM OXIDE
  18. ONDANSETRON [Concomitant]
     Active Substance: ONDANSETRON
  19. OXYCODONE [Concomitant]
     Active Substance: OXYCODONE
  20. PREDNISOLONE. [Concomitant]
     Active Substance: PREDNISOLONE

REACTIONS (1)
  - Hospitalisation [None]
